FAERS Safety Report 25862984 (Version 2)
Quarter: 2025Q4

REPORT INFORMATION
  Report Type: Spontaneous
  Country: US (occurrence: US)
  Receive Date: 20250930
  Receipt Date: 20251024
  Transmission Date: 20260118
  Serious: Yes (Life-Threatening, Hospitalization, Other)
  Sender: ALKEM
  Company Number: None

PATIENT
  Age: 59 Year
  Sex: Female

DRUGS (3)
  1. SILDENAFIL [Suspect]
     Active Substance: SILDENAFIL
     Indication: Pulmonary hypertension
     Dosage: 20 MILLIGRAM, TID
     Route: 065
  2. SILDENAFIL [Suspect]
     Active Substance: SILDENAFIL
     Dosage: 40 MILLIGRAM, TID
     Route: 065
  3. OXYGEN [Concomitant]
     Active Substance: OXYGEN
     Indication: Product used for unknown indication
     Dosage: 2 LITER
     Route: 065

REACTIONS (7)
  - Cardiac failure acute [Recovered/Resolved]
  - Pulseless electrical activity [Recovered/Resolved]
  - Increased ventricular preload [Recovered/Resolved]
  - Secretion discharge [Recovered/Resolved]
  - Syncope [Recovered/Resolved]
  - Pulmonary hypertension [Recovered/Resolved]
  - Pulmonary oedema [Recovered/Resolved]
